FAERS Safety Report 5207663-1 (Version None)
Quarter: 2007Q1

REPORT INFORMATION
  Report Type: 
  Country: None (occurrence: None)
  Receive Date: 20070112
  Receipt Date: 20070102
  Transmission Date: 20070707
  Serious: Yes (Other)
  Sender: FDA-Public Use
  Company Number: BE-PFIZER INC-2006152014

PATIENT
  Sex: Female
  Weight: 55 kg

DRUGS (11)
  1. SOLU-MEDROL [Suspect]
     Indication: HYPERSENSITIVITY
     Route: 030
  2. METHYLPREDNISOLONE [Suspect]
     Indication: HYPERSENSITIVITY
     Dosage: DAILY DOSE:4MG
     Route: 048
  3. AUGMENTIN '125' [Concomitant]
  4. PLAVIX [Concomitant]
     Route: 048
  5. ASPIRIN [Concomitant]
     Route: 048
  6. OMEPRAZOLE [Concomitant]
     Route: 048
  7. TENORMIN [Concomitant]
     Route: 048
  8. ZOCOR [Concomitant]
     Route: 048
  9. ZOPLICONE [Concomitant]
     Route: 048
  10. DROSPIRENONE + ETHINYL ESTRADIOL [Concomitant]
     Route: 048
  11. OLMETEC [Concomitant]
     Route: 048

REACTIONS (2)
  - DYSPNOEA [None]
  - HYPERSENSITIVITY [None]
